FAERS Safety Report 19262595 (Version 2)
Quarter: 2021Q3

REPORT INFORMATION
  Report Type: Spontaneous
  Country: US (occurrence: US)
  Receive Date: 20210517
  Receipt Date: 20210913
  Transmission Date: 20211014
  Serious: No
  Sender: FDA-Public Use
  Company Number: US-SA-2021SA160697

PATIENT
  Age: 11 Year
  Sex: Male

DRUGS (5)
  1. DUPIXENT [Suspect]
     Active Substance: DUPILUMAB
     Indication: DERMATITIS ATOPIC
     Dosage: 200 MG, QOW
     Route: 058
     Dates: start: 20210122
  2. CLARITIN [Concomitant]
     Active Substance: LORATADINE
  3. CLARITIN [Concomitant]
     Active Substance: LORATADINE
  4. CORDRAN [Concomitant]
     Active Substance: FLURANDRENOLIDE
  5. CORDRAN [Concomitant]
     Active Substance: FLURANDRENOLIDE

REACTIONS (6)
  - Sleep disorder [Not Recovered/Not Resolved]
  - Eczema [Not Recovered/Not Resolved]
  - Dermatitis atopic [Recovering/Resolving]
  - Product use issue [Unknown]
  - Discomfort [Not Recovered/Not Resolved]
  - Rash [Not Recovered/Not Resolved]

NARRATIVE: CASE EVENT DATE: 2021
